FAERS Safety Report 4423152-6 (Version None)
Quarter: 2004Q3

REPORT INFORMATION
  Report Type: 
  Country: None (occurrence: None)
  Receive Date: 20040811
  Receipt Date: 20040630
  Transmission Date: 20050211
  Serious: Yes (Life-Threatening, Hospitalization)
  Sender: FDA-Public Use
  Company Number: FR-ROCHE-372453

PATIENT
  Age: 69 Year
  Sex: Female

DRUGS (4)
  1. LOXEN LP [Suspect]
     Indication: DRUG USE FOR UNKNOWN INDICATION
     Dosage: THERAPY DURATION: LESS THAN ONE MONTH.
     Route: 048
     Dates: start: 20040415, end: 20040430
  2. LOXEN LP [Suspect]
     Dosage: DRUG NAME: LOXEN 20.
     Route: 048
     Dates: end: 20040415
  3. ZOCOR [Interacting]
     Indication: DRUG USE FOR UNKNOWN INDICATION
     Route: 048
     Dates: start: 19920101, end: 20040429
  4. OMEPRAZOLE [Concomitant]

REACTIONS (6)
  - BRADYARRHYTHMIA [None]
  - DRUG INTERACTION [None]
  - HEPATITIS [None]
  - MYOSITIS [None]
  - RESPIRATORY DISTRESS [None]
  - RHABDOMYOLYSIS [None]
